FAERS Safety Report 4955310-6 (Version None)
Quarter: 2006Q1

REPORT INFORMATION
  Report Type: 
  Country: None (occurrence: None)
  Receive Date: 20060322
  Receipt Date: 20060316
  Transmission Date: 20060701
  Serious: Yes (Death)
  Sender: FDA-Public Use
  Company Number: A001-002-006811

PATIENT
  Age: 78 Year
  Sex: Male

DRUGS (2)
  1. ARICEPT [Suspect]
     Indication: DEMENTIA ALZHEIMER'S TYPE
     Dosage: 5 MG, 1 IN 1 D; ORAL
     Route: 048
     Dates: start: 20060101, end: 20060101
  2. WELLBUTRIN [Concomitant]

REACTIONS (1)
  - SUDDEN DEATH [None]
